FAERS Safety Report 17156229 (Version 3)
Quarter: 2020Q1

REPORT INFORMATION
  Report Type: Spontaneous
  Country: TR (occurrence: TR)
  Receive Date: 20191216
  Receipt Date: 20200316
  Transmission Date: 20200409
  Serious: Yes (Other)
  Sender: FDA-Public Use
  Company Number: TR-ABBVIE-19K-161-3193122-00

PATIENT
  Sex: Female
  Weight: 41.8 kg

DRUGS (1)
  1. LUCRIN DEPOT [Suspect]
     Active Substance: LEUPROLIDE ACETATE
     Indication: PRECOCIOUS PUBERTY
     Route: 058
     Dates: start: 201806, end: 20191108

REACTIONS (6)
  - Injection site abscess sterile [Recovered/Resolved]
  - Drug hypersensitivity [Recovered/Resolved]
  - Scar [Not Recovered/Not Resolved]
  - Peripheral swelling [Recovered/Resolved]
  - Injection site discharge [Recovered/Resolved]
  - Erythema [Recovered/Resolved]

NARRATIVE: CASE EVENT DATE: 201910
